FAERS Safety Report 4586417-3 (Version None)
Quarter: 2005Q1

REPORT INFORMATION
  Report Type: 
  Country: None (occurrence: None)
  Receive Date: 20050218
  Receipt Date: 20050216
  Transmission Date: 20050727
  Serious: Yes (Death)
  Sender: FDA-Public Use
  Company Number: PHHO2005ES02738

PATIENT
  Age: 45 Year
  Sex: Male

DRUGS (2)
  1. NEORAL [Suspect]
     Indication: RENAL TRANSPLANT
     Dates: start: 19940811, end: 20030512
  2. STEROIDS NOS [Suspect]
     Indication: RENAL TRANSPLANT

REACTIONS (1)
  - SUDDEN DEATH [None]
